FAERS Safety Report 19972192 (Version 1)
Quarter: 2021Q4

REPORT INFORMATION
  Report Type: Spontaneous
  Country: US (occurrence: US)
  Receive Date: 20211019
  Receipt Date: 20211019
  Transmission Date: 20220303
  Serious: Yes (Other)
  Sender: FDA-Public Use
  Company Number: US-TAKEDA-2021TUS063611

PATIENT
  Age: 19 Year
  Sex: Male

DRUGS (2)
  1. ANTI-INHIBITOR COAGULANT COMPLEX [Suspect]
     Active Substance: ANTI-INHIBITOR COAGULANT COMPLEX
     Indication: Factor VIII deficiency
     Dosage: UNK
     Route: 065
  2. EMICIZUMAB [Concomitant]
     Active Substance: EMICIZUMAB
     Indication: Prophylaxis
     Dosage: UNK, 1/WEEK
     Route: 065

REACTIONS (1)
  - Drug ineffective [Unknown]
